FAERS Safety Report 23820475 (Version 1)
Quarter: 2024Q2

REPORT INFORMATION
  Report Type: Spontaneous
  Country: US (occurrence: None)
  Receive Date: 20240503
  Receipt Date: 20240503
  Transmission Date: 20240716
  Serious: No
  Sender: FDA-Public Use
  Company Number: None

PATIENT
  Age: 60 Year
  Sex: 0

DRUGS (1)
  1. TREMFYA [Suspect]
     Active Substance: GUSELKUMAB
     Indication: Psoriatic arthropathy
     Dosage: 100 MG/ML EVERY 8 WEEKS SUBCUTANEOUS
     Route: 058
     Dates: start: 20231010, end: 20240503

REACTIONS (4)
  - Hepatic pain [None]
  - Headache [None]
  - Nausea [None]
  - Discomfort [None]

NARRATIVE: CASE EVENT DATE: 20240104
